FAERS Safety Report 16908598 (Version 1)
Quarter: 2019Q4

REPORT INFORMATION
  Report Type: Spontaneous
  Country: CN (occurrence: CN)
  Receive Date: 20191011
  Receipt Date: 20191011
  Transmission Date: 20200122
  Serious: Yes (Hospitalization)
  Sender: FDA-Public Use
  Company Number: CN-PFIZER INC-2019436921

PATIENT
  Age: 40 Year
  Sex: Female
  Weight: 48.9 kg

DRUGS (2)
  1. CYCLOPHOSPHAMIDE. [Suspect]
     Active Substance: CYCLOPHOSPHAMIDE
     Indication: BREAST CANCER
     Dosage: 0.9 G, 1X/DAY
     Route: 041
     Dates: start: 20190918, end: 20190918
  2. PHARMORUBICIN [Suspect]
     Active Substance: EPIRUBICIN
     Indication: BREAST CANCER
     Dosage: 150 MG, 1X/DAY
     Route: 041
     Dates: start: 20190918, end: 20190918

REACTIONS (2)
  - White blood cell count decreased [Recovering/Resolving]
  - Asthenia [Recovering/Resolving]

NARRATIVE: CASE EVENT DATE: 20190925
